FAERS Safety Report 5272471-2 (Version None)
Quarter: 2007Q1

REPORT INFORMATION
  Report Type: 
  Country: None (occurrence: None)
  Receive Date: 20061214
  Receipt Date: 20060912
  Transmission Date: 20070707
  Serious: Yes (Hospitalization, Other)
  Sender: FDA-Public Use
  Company Number: 2006080729

PATIENT
  Age: 58 Year
  Sex: Male

DRUGS (1)
  1. BEXTRA [Suspect]
     Indication: BACK PAIN
     Dosage: 20 MG (20 MG), UNKNOWN
     Dates: start: 20020722, end: 20040927

REACTIONS (1)
  - MYOCARDIAL INFARCTION [None]
